FAERS Safety Report 4614020-5 (Version None)
Quarter: 2005Q1

REPORT INFORMATION
  Report Type: 
  Country: None (occurrence: None)
  Receive Date: 20050321
  Receipt Date: 20050310
  Transmission Date: 20050727
  Serious: Yes (Other)
  Sender: FDA-Public Use
  Company Number: BR-ROCHE-398439

PATIENT
  Age: 23 Year
  Sex: Female
  Weight: 56 kg

DRUGS (1)
  1. ROACUTAN [Suspect]
     Indication: ACNE
     Route: 048
     Dates: start: 20050217, end: 20050224

REACTIONS (2)
  - HYPERTROPHY [None]
  - SALIVARY GLAND ENLARGEMENT [None]
